FAERS Safety Report 6601558-4 (Version None)
Quarter: 2010Q1

REPORT INFORMATION
  Report Type: 
  Country: None (occurrence: None)
  Receive Date: 20100225
  Receipt Date: 20091203
  Transmission Date: 20100710
  Serious: No
  Sender: FDA-Public Use
  Company Number: US-KINGPHARMUSA00001-K200901524

PATIENT
  Age: 87 Year
  Sex: Female
  Weight: 74.83 kg

DRUGS (1)
  1. FLECTOR [Suspect]
     Indication: POST HERPETIC NEURALGIA
     Dosage: 1 PATCH, QD
     Route: 061
     Dates: start: 20091112, end: 20091101

REACTIONS (1)
  - PAIN [None]
